FAERS Safety Report 21459806 (Version 1)
Quarter: 2022Q4

REPORT INFORMATION
  Report Type: Spontaneous
  Country: US (occurrence: US)
  Receive Date: 20221014
  Receipt Date: 20221014
  Transmission Date: 20230113
  Serious: Yes (Other)
  Sender: FDA-Public Use
  Company Number: US-TEVA-2022-US-2081460

PATIENT
  Age: 73 Year
  Sex: Male
  Weight: 112 kg

DRUGS (1)
  1. PROAIR HFA [Suspect]
     Active Substance: ALBUTEROL SULFATE
     Indication: Product used for unknown indication
     Dosage: 1 PUFF 4 TIMES A DAY
     Route: 065

REACTIONS (7)
  - Diabetes mellitus [Unknown]
  - Neuropathy peripheral [Unknown]
  - Pneumonia [Unknown]
  - Limb discomfort [Unknown]
  - Lung disorder [Unknown]
  - COVID-19 [Unknown]
  - Dyspnoea [Unknown]
